FAERS Safety Report 14488924 (Version 1)
Quarter: 2018Q1

REPORT INFORMATION
  Report Type: Spontaneous
  Country: US (occurrence: US)
  Receive Date: 20180205
  Receipt Date: 20180205
  Transmission Date: 20180509
  Serious: No
  Sender: FDA-Public Use
  Company Number: US-AMGEN-USASP2017051088

PATIENT
  Age: 81 Year
  Sex: Male

DRUGS (4)
  1. NEULASTA [Suspect]
     Active Substance: PEGFILGRASTIM
     Indication: PRODUCT USED FOR UNKNOWN INDICATION
     Dosage: UNK, AFTER CHEMO
     Route: 065
     Dates: start: 20170228
  2. ZOLOFT [Concomitant]
     Active Substance: SERTRALINE HYDROCHLORIDE
     Dosage: UNK
  3. FLUDROCORTISONE [Concomitant]
     Active Substance: FLUDROCORTISONE
     Dosage: 0.2 MG, QD
  4. POTASSIUM [Concomitant]
     Active Substance: POTASSIUM
     Dosage: UNK

REACTIONS (8)
  - Hypotension [Unknown]
  - Balance disorder [Not Recovered/Not Resolved]
  - Peripheral swelling [Recovering/Resolving]
  - Dizziness [Not Recovered/Not Resolved]
  - Fall [Unknown]
  - Orthostatic heart rate response increased [Unknown]
  - Tremor [Unknown]
  - Constipation [Unknown]

NARRATIVE: CASE EVENT DATE: 2017
